FAERS Safety Report 16300548 (Version 1)
Quarter: 2019Q2

REPORT INFORMATION
  Report Type: Report from Study
  Country: US (occurrence: US)
  Receive Date: 20190510
  Receipt Date: 20190510
  Transmission Date: 20190711
  Serious: No
  Sender: FDA-Public Use
  Company Number: PHEH2019US019711

PATIENT
  Age: 54 Year
  Sex: Female
  Weight: 86.18 kg

DRUGS (1)
  1. GLATOPA [Suspect]
     Active Substance: GLATIRAMER ACETATE
     Indication: PRODUCT USED FOR UNKNOWN INDICATION
     Dosage: 20 MG, QD
     Route: 058
     Dates: start: 20190228

REACTIONS (1)
  - Injection site swelling [Recovered/Resolved]

NARRATIVE: CASE EVENT DATE: 20190228
